FAERS Safety Report 4289546-7 (Version None)
Quarter: 2004Q1

REPORT INFORMATION
  Report Type: 
  Country: None (occurrence: None)
  Receive Date: 20040203
  Receipt Date: 20030411
  Transmission Date: 20041129
  Serious: Yes (Other)
  Sender: FDA-Public Use
  Company Number: 200316488BWH

PATIENT
  Age: 67 Year
  Sex: Female
  Weight: 61.2356 kg

DRUGS (3)
  1. AVELOX [Suspect]
     Indication: LUNG INFECTION
     Dosage: 400 MG, TOTAL DAILY, ORAL
     Route: 048
     Dates: start: 20030404
  2. NEXIUM [Concomitant]
  3. SYNTHROID [Concomitant]

REACTIONS (2)
  - DYSPEPSIA [None]
  - FEELING ABNORMAL [None]
